FAERS Safety Report 8112480-9 (Version None)
Quarter: 2012Q1

REPORT INFORMATION
  Report Type: 
  Country: None (occurrence: None)
  Receive Date: 20120203
  Receipt Date: 20120127
  Transmission Date: 20120608
  Serious: Yes (Hospitalization, Other)
  Sender: FDA-Public Use
  Company Number: US-AMGEN-USASP2012005810

PATIENT
  Age: 70 Year
  Sex: Female

DRUGS (3)
  1. ENBREL [Suspect]
     Indication: RHEUMATOID ARTHRITIS
  2. ENBREL [Suspect]
     Indication: OSTEOPOROSIS
     Dosage: 50 MG, QWK
     Dates: start: 20111001
  3. ENBREL [Suspect]
     Indication: PSORIATIC ARTHROPATHY

REACTIONS (1)
  - OSTEOARTHRITIS [None]
